FAERS Safety Report 7536357-2 (Version None)
Quarter: 2011Q2

REPORT INFORMATION
  Report Type: 
  Country: None (occurrence: None)
  Receive Date: 20110608
  Receipt Date: 20110608
  Transmission Date: 20111010
  Serious: Yes (Hospitalization)
  Sender: FDA-Public Use
  Company Number: None

PATIENT
  Sex: Female
  Weight: 64.3 kg

DRUGS (2)
  1. ASPIRIN [Concomitant]
  2. DABIGATRAN 150 MG BOEHRINGER INGELHEIM [Suspect]
     Indication: ATRIAL FIBRILLATION
     Dosage: 150 MG TWICE DAILY PO
     Route: 048
     Dates: start: 20110408, end: 20110422

REACTIONS (1)
  - RECTAL HAEMORRHAGE [None]
